FAERS Safety Report 7508968-1 (Version None)
Quarter: 2011Q2

REPORT INFORMATION
  Report Type: 
  Country: None (occurrence: None)
  Receive Date: 20110527
  Receipt Date: 20110523
  Transmission Date: 20111010
  Serious: No
  Sender: FDA-Public Use
  Company Number: US-PFIZER INC-2011112259

PATIENT
  Sex: Male

DRUGS (1)
  1. ANIDULAFUNGIN [Suspect]
     Dosage: UNK
     Dates: start: 20110401, end: 20110515

REACTIONS (1)
  - MALAISE [None]
